FAERS Safety Report 8257616-4 (Version None)
Quarter: 2012Q2

REPORT INFORMATION
  Report Type: 
  Country: None (occurrence: None)
  Receive Date: 20120403
  Receipt Date: 20120327
  Transmission Date: 20120825
  Serious: Yes (Other)
  Sender: FDA-Public Use
  Company Number: PHHY2012HU027733

PATIENT
  Sex: Female

DRUGS (1)
  1. AMOXICILLIN AND CLAVULANATE POTASSIUM [Suspect]
     Indication: SINUSITIS
     Dosage: 2000 MG, DAILY
     Route: 048
     Dates: start: 20120326, end: 20120327

REACTIONS (3)
  - HEADACHE [None]
  - MALAISE [None]
  - RASH GENERALISED [None]
